FAERS Safety Report 9468979 (Version 1)
Quarter: 2013Q3

REPORT INFORMATION
  Report Type: Spontaneous
  Country: US (occurrence: US)
  Receive Date: 20130821
  Receipt Date: 20130821
  Transmission Date: 20140515
  Serious: No
  Sender: FDA-Public Use
  Company Number: US-TEVA-426997USA

PATIENT
  Sex: Female
  Weight: 57.2 kg

DRUGS (5)
  1. PARAGARD 380A [Suspect]
     Indication: CONTRACEPTION
     Route: 015
     Dates: start: 20130802, end: 20130805
  2. PAXIL [Concomitant]
  3. KLONOPIN [Concomitant]
  4. LISINOPRIL [Concomitant]
  5. ADDERALL [Concomitant]

REACTIONS (1)
  - Device expulsion [Unknown]
